FAERS Safety Report 6016566-4 (Version None)
Quarter: 2008Q4

REPORT INFORMATION
  Report Type: 
  Country: None (occurrence: None)
  Receive Date: 20081218
  Receipt Date: 20081204
  Transmission Date: 20090506
  Serious: Yes (Death, Other)
  Sender: FDA-Public Use
  Company Number: 2008002546

PATIENT
  Age: 53 Year
  Sex: Male

DRUGS (1)
  1. TARCEVA  (ERLOTINIB) (TABLET) [Suspect]
     Indication: NON-SMALL CELL LUNG CANCER
     Dosage: 150 MG, QD, ORAL
     Route: 048
     Dates: start: 20080823

REACTIONS (7)
  - ANAEMIA [None]
  - APNOEA [None]
  - CELLULITIS [None]
  - DEPRESSED MOOD [None]
  - MALIGNANT NEOPLASM PROGRESSION [None]
  - METASTASES TO LUNG [None]
  - PAIN IN EXTREMITY [None]
